FAERS Safety Report 8915915 (Version 1)
Quarter: 2012Q4

REPORT INFORMATION
  Report Type: 
  Country: BE (occurrence: BE)
  Receive Date: 20121119
  Receipt Date: 20121119
  Transmission Date: 20130627
  Serious: Yes (Death)
  Sender: FDA-Public Use
  Company Number: BE-TEVA-368966ISR

PATIENT
  Sex: Female

DRUGS (16)
  1. ETOPOSIDE [Suspect]
     Indication: GESTATIONAL TROPHOBLASTIC TUMOUR
     Dosage: 100 mg/m2 over 30 minutes on day 1 every week; then 100 mg/m2 on day 2 every week
     Route: 065
  2. ETOPOSIDE [Suspect]
     Indication: GESTATIONAL TROPHOBLASTIC TUMOUR
     Dosage: on day 1; then 100 mg/m2 on day 8 every 14 days
     Route: 065
  3. ETOPOSIDE [Suspect]
     Indication: GESTATIONAL TROPHOBLASTIC TUMOUR
     Dosage: on day 8
     Route: 065
  4. METHOTREXATE [Suspect]
     Indication: GESTATIONAL TROPHOBLASTIC TUMOUR
     Dosage: 1000 mg/m2 infusion over 4 hours on day 1 every week
     Route: 065
  5. METHOTREXATE [Suspect]
     Indication: GESTATIONAL TROPHOBLASTIC TUMOUR
     Dosage: on day 8
     Route: 065
  6. METHOTREXATE [Suspect]
     Indication: GESTATIONAL TROPHOBLASTIC TUMOUR
     Route: 037
  7. CISPLATIN [Suspect]
     Indication: GESTATIONAL TROPHOBLASTIC TUMOUR
     Dosage: on day 1
     Route: 042
  8. CARBOPLATIN [Suspect]
     Indication: GESTATIONAL TROPHOBLASTIC TUMOUR
     Route: 065
  9. DACTINOMYCIN [Suspect]
     Indication: GESTATIONAL TROPHOBLASTIC TUMOUR
     Dosage: on day 8
     Route: 042
  10. SODIUM CHLORIDE [Concomitant]
     Dosage: 1L of 0.9% over 2 hours on day 1
     Route: 042
  11. SODIUM BICARBONATE [Concomitant]
     Dosage: 500mL of 1.4% over 30 min on day 1
     Route: 065
  12. APREPITANT [Concomitant]
     Route: 065
  13. ONDANSETRON [Concomitant]
     Route: 065
  14. SOLUMEDROL [Concomitant]
     Route: 065
  15. FOLINIC ACID [Concomitant]
     Indication: DRUG TOXICITY PROPHYLAXIS
     Route: 065
  16. ALLOPURINOL [Concomitant]
     Dosage: on days 1-4
     Route: 065

REACTIONS (7)
  - Drug resistance [Unknown]
  - Pancytopenia [Recovered/Resolved]
  - Diabetic hyperosmolar coma [Recovered/Resolved]
  - Ototoxicity [Unknown]
  - Neutropenic sepsis [Fatal]
  - Endocarditis [Fatal]
  - Septic embolus [Fatal]
